FAERS Safety Report 6632164-3 (Version None)
Quarter: 2010Q1

REPORT INFORMATION
  Report Type: 
  Country: None (occurrence: None)
  Receive Date: 20100310
  Receipt Date: 20100225
  Transmission Date: 20100710
  Serious: Yes (Hospitalization, Other)
  Sender: FDA-Public Use
  Company Number: 232024J10USA

PATIENT
  Age: 61 Year
  Sex: Female
  Weight: 67 kg

DRUGS (9)
  1. REBIF [Suspect]
     Indication: MULTIPLE SCLEROSIS
     Dosage: SEE IMAGE
     Route: 057
     Dates: start: 20100101, end: 20100201
  2. REBIF [Suspect]
     Indication: MULTIPLE SCLEROSIS
     Dosage: SEE IMAGE
     Route: 057
     Dates: start: 20100119, end: 20100224
  3. REBIF [Suspect]
     Indication: MULTIPLE SCLEROSIS
     Dosage: SEE IMAGE
     Route: 057
     Dates: start: 20100224
  4. INDERAL [Concomitant]
  5. NORVASC [Concomitant]
  6. MAXIDE (DYAZIDE) [Concomitant]
  7. PRILOSEC [Concomitant]
  8. MAALOX (ALUDROX /00082501/) [Concomitant]
  9. EXCEDRIN (MIGRAINE) [Concomitant]

REACTIONS (14)
  - ABDOMINAL PAIN UPPER [None]
  - COLITIS ISCHAEMIC [None]
  - DEHYDRATION [None]
  - DIARRHOEA [None]
  - DIZZINESS [None]
  - HAEMOGLOBIN DECREASED [None]
  - HEADACHE [None]
  - HYPOTENSION [None]
  - MIGRAINE [None]
  - NAUSEA [None]
  - VENTRICULAR EXTRASYSTOLES [None]
  - VOMITING [None]
  - VULVOVAGINAL BURNING SENSATION [None]
  - WEIGHT DECREASED [None]
